FAERS Safety Report 18125949 (Version 1)
Quarter: 2020Q3

REPORT INFORMATION
  Report Type: Spontaneous
  Country: US (occurrence: US)
  Receive Date: 20200807
  Receipt Date: 20200807
  Transmission Date: 20201103
  Serious: No
  Sender: FDA-Public Use
  Company Number: US-PURDUE-USA-2020-0149998

PATIENT
  Sex: Male

DRUGS (3)
  1. BUTRANS [Suspect]
     Active Substance: BUPRENORPHINE
     Indication: SPINAL PAIN
     Dosage: UNK
     Route: 062
  2. BUPRENORPHINE TRANSDERMAL PATCH (SIMILAR TO NDA 21?306) [Suspect]
     Active Substance: BUPRENORPHINE
     Indication: SPINAL PAIN
     Dosage: UNK
     Route: 062
  3. OXYCODONE HYDROCHLORIDE (SIMILAR TO NDA 22?272) [Suspect]
     Active Substance: OXYCODONE HYDROCHLORIDE
     Indication: BREAKTHROUGH PAIN
     Dosage: 7.5 MG, PRN
     Route: 048

REACTIONS (4)
  - Constipation [Unknown]
  - Pain [Unknown]
  - Therapeutic product effect decreased [Unknown]
  - Intervertebral disc protrusion [Unknown]
